FAERS Safety Report 9468561 (Version 1)
Quarter: 2013Q3

REPORT INFORMATION
  Report Type: Spontaneous
  Country: US (occurrence: US)
  Receive Date: 20130821
  Receipt Date: 20130821
  Transmission Date: 20140515
  Serious: Yes (Hospitalization, Other)
  Sender: FDA-Public Use
  Company Number: US-ASTRAZENECA-2013SE63493

PATIENT
  Age: 19 Year
  Sex: Male
  Weight: 72.6 kg

DRUGS (9)
  1. ENTOCORT EC [Suspect]
     Indication: CROHN^S DISEASE
     Route: 048
     Dates: start: 2008, end: 2008
  2. ENTOCORT EC [Suspect]
     Indication: CROHN^S DISEASE
     Dosage: GENERIC
     Route: 048
  3. MORPHINE [Concomitant]
     Indication: PAIN
     Dosage: PRN
     Route: 048
     Dates: start: 20130802
  4. REMACAID [Concomitant]
     Indication: CROHN^S DISEASE
     Dates: start: 2011
  5. PREDNISONE [Concomitant]
     Indication: CROHN^S DISEASE
     Route: 048
     Dates: start: 20130802
  6. PERCOCET [Concomitant]
     Indication: PAIN
     Dosage: PRN
     Route: 048
     Dates: start: 20130802
  7. FLAGYL [Concomitant]
     Indication: ANTIBIOTIC THERAPY
     Route: 048
     Dates: start: 20130702, end: 20130810
  8. LEVAQUIN [Concomitant]
     Indication: ANTIBIOTIC THERAPY
     Dosage: DAILY
     Route: 048
     Dates: start: 20130802, end: 20130810
  9. HUMERIA [Concomitant]

REACTIONS (5)
  - Fistula [Recovered/Resolved]
  - Gastrointestinal infection [Recovered/Resolved]
  - Intestinal fistula [Recovered/Resolved]
  - Dehydration [Unknown]
  - Drug ineffective [Unknown]
